FAERS Safety Report 6305516-9 (Version None)
Quarter: 2009Q3

REPORT INFORMATION
  Report Type: 
  Country: None (occurrence: None)
  Receive Date: 20090807
  Receipt Date: 20090730
  Transmission Date: 20100115
  Serious: Yes (Hospitalization)
  Sender: FDA-Public Use
  Company Number: GXKR2009FI08710

PATIENT
  Age: 55 Year
  Sex: Female

DRUGS (2)
  1. SIMVASTATIN [Suspect]
     Dosage: 40 MG/DAY
     Dates: start: 20070101
  2. REUMACON (DEMETHYLPODOPHYLLOTOXIN BENZYLIDENE GLUCOSID, PODOPHYLLOTOXI [Suspect]
     Indication: RHEUMATOID ARTHRITIS
     Dates: start: 20060501

REACTIONS (2)
  - DRUG INTERACTION [None]
  - RHABDOMYOLYSIS [None]
